FAERS Safety Report 6235304-3 (Version None)
Quarter: 2009Q2

REPORT INFORMATION
  Report Type: 
  Country: None (occurrence: None)
  Receive Date: 20090616
  Receipt Date: 20090601
  Transmission Date: 20091009
  Serious: Yes (Death)
  Sender: FDA-Public Use
  Company Number: 2009001480

PATIENT
  Age: 71 Year
  Sex: Female

DRUGS (5)
  1. ERLOTINIB (ERLOTINIB) (TABLET) (ERLOTINIB) [Suspect]
     Indication: NON-SMALL CELL LUNG CANCER
     Dosage: 150 MG, QD, ORAL
     Route: 048
     Dates: start: 20090227, end: 20090503
  2. CAPECITABINE (CAPECITABINE) [Suspect]
     Indication: NON-SMALL CELL LUNG CANCER
     Dosage: 1500 MG, ORAL
     Route: 048
     Dates: start: 20090227
  3. CEFTIZOXIME (CEFTIZOXIME) [Concomitant]
  4. LEVOFLOXACIN [Concomitant]
  5. THYMIC HUMORAL FACTOR GAMMA 2 [Concomitant]

REACTIONS (1)
  - PULMONARY EMBOLISM [None]
